FAERS Safety Report 15945681 (Version 5)
Quarter: 2019Q2

REPORT INFORMATION
  Report Type: Spontaneous
  Country: IT (occurrence: IT)
  Receive Date: 20190211
  Receipt Date: 20190406
  Transmission Date: 20190711
  Serious: Yes (Life-Threatening, Hospitalization, Other)
  Sender: FDA-Public Use
  Company Number: IT-ACCORD-061071

PATIENT
  Age: 15 Year
  Sex: Female
  Weight: 85 kg

DRUGS (17)
  1. LASIX [Concomitant]
     Active Substance: FUROSEMIDE
     Indication: PRODUCT USED FOR UNKNOWN INDICATION
     Dosage: 20 MG/2 ML,150 MG FROM 23-MAY-2017 TO 02-JUN-2017
     Route: 042
     Dates: start: 20170523, end: 20170620
  2. EMEND [Concomitant]
     Active Substance: APREPITANT
     Indication: PRODUCT USED FOR UNKNOWN INDICATION
     Route: 065
     Dates: start: 20170523, end: 20170527
  3. ALLOPURINOL. [Concomitant]
     Active Substance: ALLOPURINOL
     Indication: PRODUCT USED FOR UNKNOWN INDICATION
     Dosage: 300 MG, UNK
     Route: 065
     Dates: start: 20170526, end: 20170531
  4. FOTEMUSTINE [Suspect]
     Active Substance: FOTEMUSTINE
     Indication: ALLOGENIC BONE MARROW TRANSPLANTATION THERAPY
     Dosage: 300 MG DAILY
     Route: 042
     Dates: start: 20170524, end: 20170525
  5. NYSTATIN. [Concomitant]
     Active Substance: NYSTATIN
     Indication: PRODUCT USED FOR UNKNOWN INDICATION
     Route: 048
     Dates: start: 20170523, end: 20170623
  6. DEURSIL [Concomitant]
     Active Substance: URSODIOL
     Indication: PRODUCT USED FOR UNKNOWN INDICATION
     Dosage: STRENGTH: 300 MG,(600 MG)
     Route: 048
     Dates: start: 20170523, end: 20170623
  7. MAGNESIUM CHLORIDE ANHYDROUS [Concomitant]
     Active Substance: MAGNESIUM CHLORIDE ANHYDROUS
     Indication: PRODUCT USED FOR UNKNOWN INDICATION
     Dosage: 10 ML
     Route: 065
     Dates: start: 20170525
  8. ETOPOSIDE. [Suspect]
     Active Substance: ETOPOSIDE
     Indication: ALLOGENIC BONE MARROW TRANSPLANTATION THERAPY
     Dosage: 400 MG, QD
     Route: 042
     Dates: start: 20170526, end: 20170529
  9. ALOXI [Concomitant]
     Active Substance: PALONOSETRON HYDROCHLORIDE
     Indication: PRODUCT USED FOR UNKNOWN INDICATION
     Dosage: STRENGTH :250 MCG
     Route: 042
     Dates: start: 20170524, end: 20170527
  10. HEPARIN [Concomitant]
     Active Substance: HEPARIN SODIUM
     Indication: PRODUCT USED FOR UNKNOWN INDICATION
     Dosage: 8500 IU
     Route: 058
     Dates: start: 20170523, end: 20170623
  11. FLUCONAZOLE. [Concomitant]
     Active Substance: FLUCONAZOLE
     Indication: PRODUCT USED FOR UNKNOWN INDICATION
     Dosage: 400 MG
     Route: 042
     Dates: start: 20170523, end: 20170606
  12. POTASSIUM CHLORIDE. [Concomitant]
     Active Substance: POTASSIUM CHLORIDE
     Indication: PRODUCT USED FOR UNKNOWN INDICATION
     Dosage: 15 ML,
     Route: 065
     Dates: start: 20170524
  13. CIPROXIN [Concomitant]
     Active Substance: CIPROFLOXACIN
     Indication: PRODUCT USED FOR UNKNOWN INDICATION
     Dosage: 1000 MG
     Route: 048
     Dates: start: 20170523, end: 20170606
  14. ALKERAN [Suspect]
     Active Substance: MELPHALAN
     Indication: AUTOLOGOUS BONE MARROW TRANSPLANTATION THERAPY
     Dosage: STRENGTH: 50 MG/10 ML?280 MG, UNK (TOTAL)
     Route: 042
     Dates: start: 20170530
  15. CYTARABINE/CYTARABINE HYDROCHLORIDE/CYTARABINE OCFOSFATE [Suspect]
     Active Substance: CYTARABINE
     Indication: ALLOGENIC BONE MARROW TRANSPLANTATION THERAPY
     Dosage: 400 MG, QD, 1600 CD
     Route: 042
     Dates: start: 20170526, end: 20170529
  16. ZOVIRAX [Concomitant]
     Active Substance: ACYCLOVIR
     Indication: PRODUCT USED FOR UNKNOWN INDICATION
     Dosage: STRENGTH :800 MG(2400 MG)
     Route: 048
     Dates: start: 20170523, end: 20170529
  17. RANITIDINE. [Concomitant]
     Active Substance: RANITIDINE
     Indication: PRODUCT USED FOR UNKNOWN INDICATION
     Dosage: 150 MG,PATIENT ALSO RECEIVED DRUG BR ORAL ROA.
     Route: 042
     Dates: start: 20170523, end: 20170602

REACTIONS (14)
  - Faeces soft [Recovering/Resolving]
  - Vomiting [Recovered/Resolved]
  - Neutropenia [Recovered/Resolved]
  - Nausea [Unknown]
  - Thrombocytopenia [Recovered/Resolved]
  - Mucosal inflammation [Recovered/Resolved]
  - Cough [Recovered/Resolved]
  - Product administered to patient of inappropriate age [Unknown]
  - Erythema [Recovered/Resolved]
  - Tonsillitis [Recovered/Resolved]
  - Oropharyngeal pain [Recovered/Resolved]
  - Tonsillar haemorrhage [Unknown]
  - Off label use [Unknown]
  - Pyrexia [Recovered/Resolved]

NARRATIVE: CASE EVENT DATE: 2017
